FAERS Safety Report 20339669 (Version 2)
Quarter: 2022Q1

REPORT INFORMATION
  Report Type: Spontaneous
  Country: CA (occurrence: CA)
  Receive Date: 20220117
  Receipt Date: 20220224
  Transmission Date: 20220423
  Serious: Yes (Other)
  Sender: FDA-Public Use
  Company Number: CA-009507513-1904CAN006097

PATIENT
  Age: 55 Year
  Sex: Female

DRUGS (35)
  1. FOSAMAX [Suspect]
     Active Substance: ALENDRONATE SODIUM
     Indication: Product used for unknown indication
     Dosage: UNK
     Route: 065
  2. FOSAMAX [Suspect]
     Active Substance: ALENDRONATE SODIUM
     Dosage: UNK
     Route: 065
  3. ANASTROZOLE [Suspect]
     Active Substance: ANASTROZOLE
     Indication: Product used for unknown indication
     Dosage: UNK
     Route: 048
  4. ANASTROZOLE [Suspect]
     Active Substance: ANASTROZOLE
     Dosage: UNK
     Route: 048
  5. DOCETAXEL [Suspect]
     Active Substance: DOCETAXEL
     Indication: Product used for unknown indication
     Dosage: DOSAGE FORM: SOLUTION INTRAVENOUS
     Route: 042
  6. DOCETAXEL [Suspect]
     Active Substance: DOCETAXEL
     Dosage: DOSAGE FORM: SOLUTION INTRAVENOUS
     Route: 065
  7. DOCETAXEL [Suspect]
     Active Substance: DOCETAXEL
     Dosage: DOSAGE FORM: SOLUTION INTRAVENOUS
     Route: 042
  8. DOCETAXEL [Suspect]
     Active Substance: DOCETAXEL
     Dosage: DOSAGE FORM: SOLUTION INTRAVENOUS
     Route: 065
  9. FILGRASTIM [Suspect]
     Active Substance: FILGRASTIM
     Indication: Product used for unknown indication
     Dosage: UNK
     Route: 065
  10. FILGRASTIM [Suspect]
     Active Substance: FILGRASTIM
     Dosage: UNK
     Route: 065
  11. PACLITAXEL [Suspect]
     Active Substance: PACLITAXEL
     Indication: Product used for unknown indication
     Dosage: DOSAGE FORM: LIQUID INTRAVEOUS
     Route: 042
  12. PACLITAXEL [Suspect]
     Active Substance: PACLITAXEL
     Dosage: DOSAGE FORM: LIQUID INTRAVEOUS
     Route: 065
  13. PACLITAXEL [Suspect]
     Active Substance: PACLITAXEL
     Dosage: DOSAGE FORM: LIQUID INTRAVEOUS
     Route: 042
  14. PACLITAXEL [Suspect]
     Active Substance: PACLITAXEL
     Dosage: DOSAGE FORM: LIQUID INTRAVEOUS
     Route: 065
  15. PERJETA [Suspect]
     Active Substance: PERTUZUMAB
     Indication: Product used for unknown indication
     Dosage: 14 MILLILITER, DOSAGE FORM: SOLUTION INTRAVENOUS
     Route: 042
  16. PERJETA [Suspect]
     Active Substance: PERTUZUMAB
     Indication: Breast cancer metastatic
  17. TAMOXIFEN [Suspect]
     Active Substance: TAMOXIFEN
     Indication: Product used for unknown indication
     Dosage: UNK
     Route: 048
  18. TAMOXIFEN [Suspect]
     Active Substance: TAMOXIFEN
     Dosage: UNK
     Route: 048
  19. TRASTUZUMAB [Suspect]
     Active Substance: TRASTUZUMAB
     Indication: Product used for unknown indication
     Dosage: UNK
     Route: 042
  20. TRASTUZUMAB [Suspect]
     Active Substance: TRASTUZUMAB
     Indication: Breast cancer metastatic
     Dosage: UNK
     Route: 042
  21. NAVELBINE [Suspect]
     Active Substance: VINORELBINE TARTRATE
     Indication: Product used for unknown indication
     Dosage: DOSAGE FORM:SOLUTION INTRAVENOUS
     Route: 042
  22. NAVELBINE [Suspect]
     Active Substance: VINORELBINE TARTRATE
     Dosage: UNK
     Route: 065
  23. NAVELBINE [Suspect]
     Active Substance: VINORELBINE TARTRATE
     Dosage: DOSAGE FORM:SOLUTION INTRAVENOUS
     Route: 042
  24. NAVELBINE [Suspect]
     Active Substance: VINORELBINE TARTRATE
     Dosage: UNK
     Route: 065
  25. ZOLEDRONIC ACID [Suspect]
     Active Substance: ZOLEDRONIC ACID
     Indication: Product used for unknown indication
     Dosage: UNK
     Route: 065
  26. ZOLEDRONIC ACID [Suspect]
     Active Substance: ZOLEDRONIC ACID
     Dosage: DOSAGE FORM: NOT SPECIFIED
     Route: 065
  27. CHONDROITIN [Concomitant]
     Active Substance: CHONDROITIN
     Dosage: UNK
     Route: 065
  28. CHONDROITIN [Concomitant]
     Active Substance: CHONDROITIN
     Dosage: 16 MILLIGRAM, 1 EVERY 1 DAYS (QD)
     Route: 065
  29. CHONDROITIN [Concomitant]
     Active Substance: CHONDROITIN
     Dosage: UNK
     Route: 065
  30. CHONDROITIN [Concomitant]
     Active Substance: CHONDROITIN
     Dosage: 1 EVERY 1 DAYS
     Route: 065
  31. DEXAMETHASONE [Concomitant]
     Active Substance: DEXAMETHASONE
     Dosage: DOSAGE FORM: NOT SPECIFIED
     Route: 065
  32. DEXAMETHASONE [Concomitant]
     Active Substance: DEXAMETHASONE
     Dosage: 16.0 MILLIARAM, 1 EVERY 1 DAYS  (DOSAGE FORM NOT SPECIFIED)
     Route: 065
  33. MORPHINE [Concomitant]
     Active Substance: MORPHINE
     Indication: Product used for unknown indication
     Dosage: DOSAGE FORM: NOT SPECIFIED
     Route: 065
  34. MORPHINE [Concomitant]
     Active Substance: MORPHINE
     Dosage: DOSAGE FORM: NOT SPECIFIED
     Route: 065
  35. RABEPRAZOLE SODIUM [Concomitant]
     Active Substance: RABEPRAZOLE SODIUM
     Dosage: UNK
     Route: 065

REACTIONS (3)
  - Lower limb fracture [Unknown]
  - Nasal disorder [Unknown]
  - Tonsillar disorder [Unknown]
